FAERS Safety Report 11992912 (Version 1)
Quarter: 2016Q1

REPORT INFORMATION
  Report Type: Spontaneous
  Country: US (occurrence: US)
  Receive Date: 20160203
  Receipt Date: 20160203
  Transmission Date: 20160526
  Serious: No
  Sender: FDA-Public Use
  Company Number: US-UCBSA-2015016382

PATIENT
  Sex: Female

DRUGS (4)
  1. KEPPRA [Suspect]
     Active Substance: LEVETIRACETAM
     Indication: PRODUCT USED FOR UNKNOWN INDICATION
     Dosage: UNK DOSE
  2. KEPPRA [Suspect]
     Active Substance: LEVETIRACETAM
     Dosage: INCREASED DOSE
  3. LAMICTAL [Concomitant]
     Active Substance: LAMOTRIGINE
     Indication: PRODUCT USED FOR UNKNOWN INDICATION
     Dosage: DOSE UNKNOWN
  4. LAMICTAL [Concomitant]
     Active Substance: LAMOTRIGINE
     Dosage: INCREASED DOSE

REACTIONS (1)
  - Pregnancy [Unknown]
